FAERS Safety Report 8305400-5 (Version None)
Quarter: 2012Q2

REPORT INFORMATION
  Report Type: 
  Country: None (occurrence: None)
  Receive Date: 20120423
  Receipt Date: 20120413
  Transmission Date: 20120825
  Serious: Yes (Hospitalization)
  Sender: FDA-Public Use
  Company Number: SE-BRISTOL-MYERS SQUIBB COMPANY-16521122

PATIENT
  Age: 79 Year
  Sex: Male

DRUGS (8)
  1. WARFARIN SODIUM [Concomitant]
     Dosage: TAB
  2. METFORMIN HCL [Suspect]
     Indication: DIABETES MELLITUS
     Route: 048
     Dates: end: 20111218
  3. LANTUS [Concomitant]
  4. ESOMEPRAZOLE MAGNESIUM [Concomitant]
     Dosage: ARROW GASTRO-RESISTANT TABLET
  5. FUROSEMIDE [Concomitant]
     Dosage: TAB
  6. IRBESARTAN [Suspect]
     Route: 048
     Dates: end: 20111218
  7. ASPIRIN [Concomitant]
     Dosage: TAB
  8. GLYTRIN [Concomitant]
     Dosage: SPRAY 0.4MG/DOSE
     Route: 060

REACTIONS (2)
  - RENAL FAILURE ACUTE [None]
  - LACTIC ACIDOSIS [None]
